FAERS Safety Report 23358020 (Version 9)
Quarter: 2025Q3

REPORT INFORMATION
  Report Type: Report from Study
  Country: CA (occurrence: CA)
  Receive Date: 20240102
  Receipt Date: 20250805
  Transmission Date: 20251021
  Serious: Yes (Other)
  Sender: AMGEN
  Company Number: CA-AMGEN-CANSL2023052540

PATIENT
  Age: 48 Year
  Sex: Male

DRUGS (11)
  1. AVSOLA [Suspect]
     Active Substance: INFLIXIMAB-AXXQ
     Indication: Crohn^s disease
     Dosage: 10 MILLIGRAM/KILOGRAM, Q6WK
     Route: 065
     Dates: start: 20211207
  2. AVSOLA [Suspect]
     Active Substance: INFLIXIMAB-AXXQ
     Dosage: 10 MILLIGRAM/KILOGRAM, Q6WK
     Route: 065
  3. AVSOLA [Suspect]
     Active Substance: INFLIXIMAB-AXXQ
     Dosage: 10 MILLIGRAM/KILOGRAM, Q6WK
     Route: 065
  4. AVSOLA [Suspect]
     Active Substance: INFLIXIMAB-AXXQ
     Dosage: 10 MILLIGRAM/KILOGRAM, Q6WK
     Route: 065
  5. AVSOLA [Suspect]
     Active Substance: INFLIXIMAB-AXXQ
     Dosage: 10 MILLIGRAM/KILOGRAM, Q6WK
     Route: 065
  6. AVSOLA [Suspect]
     Active Substance: INFLIXIMAB-AXXQ
     Dosage: 10 MILLIGRAM/KILOGRAM, Q6WK
     Route: 065
  7. AVSOLA [Suspect]
     Active Substance: INFLIXIMAB-AXXQ
     Dosage: 10 MILLIGRAM/KILOGRAM, Q6WK
     Route: 065
  8. PREGABALIN [Concomitant]
     Active Substance: PREGABALIN
     Dosage: 300 MILLIGRAM, BID
     Route: 065
  9. FLEXERIL [Concomitant]
     Active Substance: CYCLOBENZAPRINE HYDROCHLORIDE
     Dosage: 10 MILLIGRAM, QD
     Route: 065
  10. PANTOPRAZOLE [Concomitant]
     Active Substance: PANTOPRAZOLE
     Dosage: 40 MILLIGRAM, QD
     Route: 065
  11. Venixxa [Concomitant]
     Dosage: UNK, BID

REACTIONS (17)
  - Crohn^s disease [Unknown]
  - Haemorrhoidal haemorrhage [Not Recovered/Not Resolved]
  - Rectal haemorrhage [Not Recovered/Not Resolved]
  - Blood iron decreased [Unknown]
  - Feeling abnormal [Unknown]
  - Muscle spasms [Not Recovered/Not Resolved]
  - Diarrhoea [Not Recovered/Not Resolved]
  - Headache [Unknown]
  - Post procedural haematoma [Unknown]
  - Procedural pain [Not Recovered/Not Resolved]
  - Tooth restoration [Unknown]
  - Malaise [Unknown]
  - Off label use [Unknown]
  - Fatigue [Not Recovered/Not Resolved]
  - Dyspnoea [Not Recovered/Not Resolved]
  - Weight decreased [Unknown]
  - Depressed mood [Unknown]

NARRATIVE: CASE EVENT DATE: 20211207
